FAERS Safety Report 6043930-X (Version None)
Quarter: 2009Q1

REPORT INFORMATION
  Report Type: 
  Country: None (occurrence: None)
  Receive Date: 20090120
  Receipt Date: 20090112
  Transmission Date: 20090719
  Serious: Yes (Other)
  Sender: FDA-Public Use
  Company Number: US-AVENTIS-200910315US

PATIENT
  Age: 54 Year
  Sex: Female

DRUGS (4)
  1. LANTUS [Suspect]
     Dosage: DOSE: 60 U IN AM AND 60 U IN PM
     Route: 058
  2. APIDRA [Suspect]
     Dosage: DOSE: UNK
  3. OPTICLIK (INSULIN INJECTION PEN) [Suspect]
  4. OPTICLIK GREY [Suspect]

REACTIONS (2)
  - RETINOPATHY [None]
  - VISUAL IMPAIRMENT [None]
